FAERS Safety Report 9018714 (Version 2)
Quarter: 2013Q1

REPORT INFORMATION
  Report Type: Spontaneous
  Country: US (occurrence: US)
  Receive Date: 20130118
  Receipt Date: 20130130
  Transmission Date: 20140127
  Serious: Yes (Death)
  Sender: FDA-Public Use
  Company Number: PHEH2013US001559

PATIENT
  Sex: Male

DRUGS (1)
  1. GLEEVEC [Suspect]
     Indication: ILL-DEFINED DISORDER
     Dosage: 400 MG, DAILY
     Route: 048
     Dates: start: 20120419

REACTIONS (1)
  - Respiratory failure [Fatal]
